FAERS Safety Report 7368659-7 (Version None)
Quarter: 2011Q1

REPORT INFORMATION
  Report Type: 
  Country: None (occurrence: None)
  Receive Date: 20110323
  Receipt Date: 20110316
  Transmission Date: 20110831
  Serious: Yes (Hospitalization)
  Sender: FDA-Public Use
  Company Number: HU-BRISTOL-MYERS SQUIBB COMPANY-14420095

PATIENT
  Age: 61 Year
  Sex: Male
  Weight: 50 kg

DRUGS (4)
  1. XELODA [Suspect]
     Indication: GASTROOESOPHAGEAL CANCER
     Dosage: TAKEN ON DAY 1-15 RECENT INF:23SEP2008
     Route: 048
     Dates: start: 20080722
  2. PERINDOPRIL [Concomitant]
     Dates: start: 20070101
  3. CETUXIMAB [Suspect]
     Indication: GASTROOESOPHAGEAL CANCER
     Dosage: RECENT INF:16SEP2008 NO OF INF:8
     Route: 042
     Dates: start: 20080722, end: 20080916
  4. CISPLATIN [Suspect]
     Indication: GASTROOESOPHAGEAL CANCER
     Dosage: TAKEN ON DAY1 OF CYCLE RECENT INF:09SEP2008
     Route: 042
     Dates: start: 20080722

REACTIONS (1)
  - ANAEMIA [None]
